FAERS Safety Report 7147916-3 (Version None)
Quarter: 2010Q4

REPORT INFORMATION
  Report Type: 
  Country: None (occurrence: None)
  Receive Date: 20101209
  Receipt Date: 20101130
  Transmission Date: 20110411
  Serious: Yes (Other)
  Sender: FDA-Public Use
  Company Number: GB-JNJFOC-20101201210

PATIENT
  Age: 53 Year
  Sex: Female

DRUGS (1)
  1. TOPAMAX [Suspect]
     Indication: MIGRAINE PROPHYLAXIS
     Route: 048

REACTIONS (4)
  - OSTEOPOROSIS [None]
  - VISION BLURRED [None]
  - VITREOUS DISORDER [None]
  - VITREOUS FLOATERS [None]
